FAERS Safety Report 8134018-2 (Version None)
Quarter: 2012Q1

REPORT INFORMATION
  Report Type: 
  Country: None (occurrence: None)
  Receive Date: 20120214
  Receipt Date: 20120202
  Transmission Date: 20120608
  Serious: Yes (Other)
  Sender: FDA-Public Use
  Company Number: US-BRISTOL-MYERS SQUIBB COMPANY-16382681

PATIENT
  Sex: Female

DRUGS (1)
  1. KENALOG [Suspect]
     Indication: CYSTOID MACULAR OEDEMA
     Dosage: OFF LABEL
     Route: 031
     Dates: start: 20100105

REACTIONS (4)
  - BLINDNESS UNILATERAL [None]
  - CATARACT [None]
  - RETINAL DETACHMENT [None]
  - ENDOPHTHALMITIS [None]
